FAERS Safety Report 14326035 (Version 4)
Quarter: 2018Q3

REPORT INFORMATION
  Report Type: Report from Study
  Country: US (occurrence: US)
  Receive Date: 20171226
  Receipt Date: 20180907
  Transmission Date: 20181010
  Serious: Yes (Hospitalization, Other)
  Sender: FDA-Public Use
  Company Number: US-ACTELION-A-US2017-164521

PATIENT
  Age: 59 Year
  Sex: Male
  Weight: 107.48 kg

DRUGS (8)
  1. ALDACTONE [Concomitant]
     Active Substance: SPIRONOLACTONE
  2. OPSUMIT [Suspect]
     Active Substance: MACITENTAN
     Indication: PULMONARY ARTERIAL HYPERTENSION
     Dosage: 10 MG, QD
     Route: 048
     Dates: start: 20171002, end: 20180105
  3. BUMEX [Concomitant]
     Active Substance: BUMETANIDE
     Dosage: 1 MG, QD
  4. DILTIAZEM. [Concomitant]
     Active Substance: DILTIAZEM
     Dosage: 120 UNK, QID
  5. ASPIRIN. [Concomitant]
     Active Substance: ASPIRIN
  6. TOPROL XL [Concomitant]
     Active Substance: METOPROLOL SUCCINATE
     Dosage: 25 MG, QD
  7. SILDENAFIL. [Concomitant]
     Active Substance: SILDENAFIL
  8. XARELTO [Concomitant]
     Active Substance: RIVAROXABAN
     Dosage: 20 UNK, UNK

REACTIONS (5)
  - Therapy non-responder [Unknown]
  - Atrial flutter [Unknown]
  - Internal haemorrhage [Unknown]
  - Anaemia [Unknown]
  - Cardiac failure [Unknown]
